FAERS Safety Report 8959163 (Version 1)
Quarter: 2012Q4

REPORT INFORMATION
  Report Type: 
  Country: US (occurrence: US)
  Receive Date: 20121211
  Receipt Date: 20121211
  Transmission Date: 20130627
  Serious: No
  Sender: FDA-Public Use
  Company Number: US-VERTEX PHARMACEUTICAL INC.-2012-020426

PATIENT

DRUGS (1)
  1. VX-950 (TELAPREVIR) [Suspect]
     Indication: HEPATITIS C
     Dosage: 2 Tablets, PO, TID
     Dates: start: 20120810

REACTIONS (2)
  - Diarrhoea [Recovered/Resolved]
  - Anal pruritus [Recovered/Resolved]
